FAERS Safety Report 25276186 (Version 1)
Quarter: 2025Q2

REPORT INFORMATION
  Report Type: Spontaneous
  Country: US (occurrence: US)
  Receive Date: 20250507
  Receipt Date: 20250507
  Transmission Date: 20250716
  Serious: Yes (Other)
  Sender: RANBAXY
  Company Number: US-SUN PHARMACEUTICAL INDUSTRIES LTD-2025R1-506298

PATIENT
  Age: 54 Year
  Sex: Male

DRUGS (1)
  1. ACETIC ACID\HYDROCORTISONE [Suspect]
     Active Substance: ACETIC ACID\HYDROCORTISONE
     Indication: Ear pain
     Route: 065

REACTIONS (1)
  - Treatment failure [Unknown]
